FAERS Safety Report 17705037 (Version 1)
Quarter: 2020Q2

REPORT INFORMATION
  Report Type: Spontaneous
  Country: US (occurrence: US)
  Receive Date: 20200424
  Receipt Date: 20200424
  Transmission Date: 20200714
  Serious: No
  Sender: FDA-Public Use
  Company Number: None

PATIENT
  Age: 54 Year
  Sex: Female

DRUGS (2)
  1. TACROLIMUS CAP 1MG [Suspect]
     Active Substance: TACROLIMUS
     Indication: COLOSTOMY
     Route: 048
     Dates: start: 201909
  2. TACROLIMUS CAP 1MG [Suspect]
     Active Substance: TACROLIMUS
     Indication: HAEMORRHAGE
     Route: 048
     Dates: start: 201909

REACTIONS (3)
  - Product dispensing error [None]
  - Circumstance or information capable of leading to medication error [None]
  - Product dose omission [None]

NARRATIVE: CASE EVENT DATE: 20200424
